FAERS Safety Report 18170205 (Version 1)
Quarter: 2020Q3

REPORT INFORMATION
  Report Type: Other
  Country: US (occurrence: US)
  Receive Date: 20200819
  Receipt Date: 20200819
  Transmission Date: 20201103
  Serious: Yes (Hospitalization)
  Sender: FDA-Public Use
  Company Number: US-ROCHE-2661358

PATIENT
  Age: 22 Year
  Sex: Female

DRUGS (10)
  1. MAGNESIUM SULFATE. [Concomitant]
     Active Substance: MAGNESIUM SULFATE
  2. AZITHROMYCIN ANHYDROUS. [Concomitant]
     Active Substance: AZITHROMYCIN ANHYDROUS
     Indication: COVID-19 PNEUMONIA
  3. HEPARIN [Concomitant]
     Active Substance: HEPARIN SODIUM
     Route: 041
  4. NITRIC OXIDE. [Concomitant]
     Active Substance: NITRIC OXIDE
  5. REMDESIVIR. [Concomitant]
     Active Substance: REMDESIVIR
  6. TOCILIZUMAB. [Suspect]
     Active Substance: TOCILIZUMAB
     Indication: COVID-19 PNEUMONIA
     Route: 065
  7. HYDROXYCHLOROQUINE [Concomitant]
     Active Substance: HYDROXYCHLOROQUINE
     Indication: COVID-19 PNEUMONIA
  8. BETAMETHASONE. [Concomitant]
     Active Substance: BETAMETHASONE
  9. PROPOFOL. [Concomitant]
     Active Substance: PROPOFOL
     Indication: PAIN
  10. RED BLOOD CELLS [Concomitant]
     Active Substance: HUMAN RED BLOOD CELL

REACTIONS (7)
  - Maternal exposure during pregnancy [Unknown]
  - Off label use [Unknown]
  - Premature separation of placenta [Unknown]
  - Premature delivery [Unknown]
  - Intentional product use issue [Unknown]
  - Pre-eclampsia [Unknown]
  - Placenta praevia [Unknown]
